FAERS Safety Report 11255321 (Version 1)
Quarter: 2015Q3

REPORT INFORMATION
  Report Type: Spontaneous
  Country: US (occurrence: US)
  Receive Date: 20150709
  Receipt Date: 20150709
  Transmission Date: 20151125
  Serious: Yes (Other)
  Sender: FDA-Public Use
  Company Number: US-MPIJNJ-2012-04639

PATIENT
  Age: 72 Year
  Sex: Female
  Weight: 74.83 kg

DRUGS (2)
  1. VELCADE [Suspect]
     Active Substance: BORTEZOMIB
     Dosage: UNK
     Route: 042
     Dates: start: 20120714
  2. VELCADE [Suspect]
     Active Substance: BORTEZOMIB
     Indication: WALDENSTROM^S MACROGLOBULINAEMIA
     Dosage: UNK
     Route: 058
     Dates: start: 20120611

REACTIONS (6)
  - Injection site swelling [Not Recovered/Not Resolved]
  - Injection site nodule [Recovering/Resolving]
  - Pruritus [Not Recovered/Not Resolved]
  - Injection site erythema [Recovering/Resolving]
  - Injection site exfoliation [Not Recovered/Not Resolved]
  - Injection site pruritus [Recovering/Resolving]

NARRATIVE: CASE EVENT DATE: 20120613
